FAERS Safety Report 16846078 (Version 1)
Quarter: 2019Q3

REPORT INFORMATION
  Report Type: Spontaneous
  Country: IT (occurrence: IT)
  Receive Date: 20190924
  Receipt Date: 20190924
  Transmission Date: 20191005
  Serious: Yes (Other)
  Sender: FDA-Public Use
  Company Number: IT-BRACCO-2019IT04758

PATIENT
  Age: 13 Year
  Sex: Female

DRUGS (1)
  1. PROHANCE [Suspect]
     Active Substance: GADOTERIDOL
     Indication: DIAGNOSTIC PROCEDURE
     Dosage: 21 ML, SINGLE
     Route: 042
     Dates: start: 20190902, end: 20190902

REACTIONS (2)
  - Macroglossia [Recovering/Resolving]
  - Speech disorder [Recovering/Resolving]
